FAERS Safety Report 4277891-0 (Version None)
Quarter: 2004Q1

REPORT INFORMATION
  Report Type: 
  Country: None (occurrence: None)
  Receive Date: 20040121
  Receipt Date: 20030207
  Transmission Date: 20041129
  Serious: Yes (Hospitalization, Other)
  Sender: FDA-Public Use
  Company Number: 2003-02-0525

PATIENT
  Age: 32 Year
  Sex: Male

DRUGS (1)
  1. SUBUTEX [Suspect]
     Route: 042

REACTIONS (8)
  - ARTERITIS [None]
  - DYSAESTHESIA [None]
  - INJECTION SITE INFECTION [None]
  - INTENTIONAL MISUSE [None]
  - OEDEMA PERIPHERAL [None]
  - PAIN [None]
  - PERIPHERAL ARTERY DISSECTION [None]
  - STAPHYLOCOCCAL INFECTION [None]
